FAERS Safety Report 23662289 (Version 2)
Quarter: 2024Q2

REPORT INFORMATION
  Report Type: Spontaneous
  Country: US (occurrence: None)
  Receive Date: 20240322
  Receipt Date: 20240408
  Transmission Date: 20240715
  Serious: No
  Sender: FDA-Public Use
  Company Number: 2024A052768

PATIENT
  Sex: Female

DRUGS (2)
  1. SYMBICORT [Suspect]
     Active Substance: BUDESONIDE\FORMOTEROL FUMARATE DIHYDRATE
     Dosage: 160 UG;UNKNOWN UNKNOWN
     Route: 055
  2. ALBUTEROL [Concomitant]
     Active Substance: ALBUTEROL

REACTIONS (6)
  - Loss of consciousness [Unknown]
  - Dyspnoea [Unknown]
  - Wrong technique in device usage process [Unknown]
  - Product dose omission issue [Unknown]
  - Intentional device misuse [Unknown]
  - Device delivery system issue [Unknown]
